FAERS Safety Report 8392740-7 (Version None)
Quarter: 2012Q1

REPORT INFORMATION
  Report Type: 
  Country: None (occurrence: None)
  Receive Date: 20120323
  Receipt Date: 20110708
  Transmission Date: 20120608
  Serious: Yes (Hospitalization)
  Sender: FDA-Public Use
  Company Number: 163-21880-11031444

PATIENT
  Sex: Male

DRUGS (4)
  1. MELPHALAN HYDROCHLORIDE [Concomitant]
  2. DECADRON [Concomitant]
  3. REVLIMID [Suspect]
     Indication: MULTIPLE MYELOMA
     Dosage: 25 MG, Q DAY X 3 WEEKS 1 WEEK OFF, PO   10 MG, DAILY, PO
     Route: 048
     Dates: start: 20110526
  4. REVLIMID [Suspect]
     Indication: MULTIPLE MYELOMA
     Dosage: 25 MG, Q DAY X 3 WEEKS 1 WEEK OFF, PO   10 MG, DAILY, PO
     Route: 048
     Dates: start: 20101117

REACTIONS (1)
  - PLATELET COUNT DECREASED [None]
